FAERS Safety Report 19603096 (Version 1)
Quarter: 2021Q3

REPORT INFORMATION
  Report Type: Spontaneous
  Country: SE (occurrence: SE)
  Receive Date: 20210723
  Receipt Date: 20210723
  Transmission Date: 20211014
  Serious: Yes (Hospitalization)
  Sender: FDA-Public Use
  Company Number: SE-TEVA-2021-SE-1934844

PATIENT
  Age: 59 Year
  Sex: Female

DRUGS (4)
  1. SERTRALIN [Suspect]
     Active Substance: SERTRALINE HYDROCHLORIDE
     Route: 065
     Dates: start: 202106, end: 202106
  2. ZOPICLONE [Suspect]
     Active Substance: ZOPICLONE
     Route: 065
     Dates: start: 202106, end: 202106
  3. BUSPIRON [BUSPIRONE HYDROCHLORIDE] [Suspect]
     Active Substance: BUSPIRONE HYDROCHLORIDE
     Route: 065
     Dates: start: 202106, end: 202106
  4. KLORZOXAZON [Suspect]
     Active Substance: CHLORZOXAZONE
     Route: 065
     Dates: start: 202106, end: 202106

REACTIONS (3)
  - Suicide attempt [Recovering/Resolving]
  - Haematemesis [Recovering/Resolving]
  - Toxicity to various agents [Recovering/Resolving]

NARRATIVE: CASE EVENT DATE: 202106
